FAERS Safety Report 10354888 (Version 2)
Quarter: 2014Q3

REPORT INFORMATION
  Report Type: Spontaneous
  Country: US (occurrence: US)
  Receive Date: 20140731
  Receipt Date: 20140827
  Transmission Date: 20150326
  Serious: Yes (Hospitalization)
  Sender: FDA-Public Use
  Company Number: US-GLAXOSMITHKLINE-A1082667A

PATIENT
  Age: 36 Year
  Sex: Female

DRUGS (9)
  1. TOPAMAX [Suspect]
     Active Substance: TOPIRAMATE
     Indication: CONVULSION
     Dosage: 100MG TWICE PER DAY
     Route: 048
     Dates: start: 201405, end: 201407
  2. ZONEGRAN [Concomitant]
     Active Substance: ZONISAMIDE
  3. LAMOTRIGINE. [Suspect]
     Active Substance: LAMOTRIGINE
     Indication: CONVULSION
     Dosage: 100MG TWICE PER DAY
     Route: 048
  4. OXYCONTIN [Concomitant]
     Active Substance: OXYCODONE HYDROCHLORIDE
  5. CITALOPRAM [Concomitant]
     Active Substance: CITALOPRAM HYDROBROMIDE
  6. TOPIRAMATE. [Suspect]
     Active Substance: TOPIRAMATE
     Indication: CONVULSION
     Route: 065
  7. DILAUDID [Concomitant]
     Active Substance: HYDROMORPHONE HYDROCHLORIDE
  8. XANAX [Concomitant]
     Active Substance: ALPRAZOLAM
  9. KLONOPIN [Concomitant]
     Active Substance: CLONAZEPAM

REACTIONS (18)
  - Convulsion [Unknown]
  - Loss of consciousness [Recovered/Resolved]
  - Nausea [Recovered/Resolved]
  - Tooth fracture [Not Recovered/Not Resolved]
  - Headache [Recovered/Resolved]
  - Facial bones fracture [Unknown]
  - Swelling face [Unknown]
  - Bone pain [Recovering/Resolving]
  - Haematoma [Not Recovered/Not Resolved]
  - Paranoia [Unknown]
  - Memory impairment [Unknown]
  - Head injury [Not Recovered/Not Resolved]
  - Periorbital contusion [Unknown]
  - Feeling abnormal [Unknown]
  - Anxiety [Not Recovered/Not Resolved]
  - Pain [Not Recovered/Not Resolved]
  - Fall [Unknown]
  - Fear [Not Recovered/Not Resolved]

NARRATIVE: CASE EVENT DATE: 2014
